FAERS Safety Report 16750825 (Version 1)
Quarter: 2019Q3

REPORT INFORMATION
  Report Type: Spontaneous
  Country: US (occurrence: US)
  Receive Date: 20190828
  Receipt Date: 20190828
  Transmission Date: 20191005
  Serious: No
  Sender: FDA-Public Use
  Company Number: US-ELI_LILLY_AND_COMPANY-US201908011258

PATIENT
  Sex: Female

DRUGS (1)
  1. EMGALITY [Suspect]
     Active Substance: GALCANEZUMAB-GNLM
     Indication: MIGRAINE PROPHYLAXIS
     Dates: start: 20190717

REACTIONS (2)
  - Alopecia [Not Recovered/Not Resolved]
  - Eyelash injury [Not Recovered/Not Resolved]

NARRATIVE: CASE EVENT DATE: 20190729
